FAERS Safety Report 11450079 (Version 1)
Quarter: 2015Q3

REPORT INFORMATION
  Report Type: Spontaneous
  Country: US (occurrence: US)
  Receive Date: 20150903
  Receipt Date: 20150903
  Transmission Date: 20151125
  Serious: No
  Sender: FDA-Public Use
  Company Number: US-ROCHE-1073125

PATIENT
  Sex: Male

DRUGS (3)
  1. RIBAVIRIN. [Suspect]
     Active Substance: RIBAVIRIN
     Indication: CHRONIC HEPATITIS C
     Route: 048
     Dates: start: 20111231
  2. PEGASYS [Suspect]
     Active Substance: PEGINTERFERON ALFA-2A
     Indication: CHRONIC HEPATITIS C
     Route: 058
     Dates: start: 20111231
  3. TELAPREVIR [Suspect]
     Active Substance: TELAPREVIR
     Indication: CHRONIC HEPATITIS C
     Route: 065
     Dates: start: 20111231

REACTIONS (12)
  - Diarrhoea [Unknown]
  - Cough [Unknown]
  - Headache [Unknown]
  - Red blood cell count decreased [Unknown]
  - Papilloedema [Unknown]
  - Vision blurred [Unknown]
  - Rash [Unknown]
  - Abdominal pain [Unknown]
  - Optic neuritis [Unknown]
  - Arthralgia [Unknown]
  - Eye disorder [Unknown]
  - Visual impairment [Unknown]
